FAERS Safety Report 4360350-4 (Version None)
Quarter: 2004Q2

REPORT INFORMATION
  Report Type: 
  Country: None (occurrence: None)
  Receive Date: 20040514
  Receipt Date: 20040505
  Transmission Date: 20050107
  Serious: Yes (Other)
  Sender: FDA-Public Use
  Company Number: US-JNJFOC-20040501458

PATIENT
  Age: 62 Year
  Sex: Female
  Weight: 106.5953 kg

DRUGS (7)
  1. LEVAQUIN [Suspect]
     Indication: CYSTITIS
     Dosage: SEE IMAGE
     Dates: start: 20040419, end: 20040424
  2. LEVAQUIN [Suspect]
     Indication: CYSTITIS
     Dosage: SEE IMAGE
     Dates: start: 20040427, end: 20040505
  3. MOBEC (MELOXICAM) [Concomitant]
  4. ALLEGRA [Concomitant]
  5. PROTONIX [Concomitant]
  6. ASPIRIN [Concomitant]
  7. AVALIDE (KARVEA HCT) [Concomitant]

REACTIONS (4)
  - JOINT EFFUSION [None]
  - JOINT SWELLING [None]
  - MENISCUS LESION [None]
  - TENDON DISORDER [None]
